FAERS Safety Report 8257960-0 (Version None)
Quarter: 2012Q1

REPORT INFORMATION
  Report Type: 
  Country: None (occurrence: None)
  Receive Date: 20111211
  Receipt Date: 20110915
  Transmission Date: 20120608
  Serious: No
  Sender: FDA-Public Use
  Company Number: 201109041

PATIENT
  Age: 65 Year
  Sex: Female
  Weight: 65.7716 kg

DRUGS (6)
  1. LIPITOR [Concomitant]
  2. LISINOPRIL [Concomitant]
  3. ESTRADIOL [Concomitant]
  4. SYNTHROID [Concomitant]
  5. ANESTHETICS, LOCAL (ANESTHETICS, LOCAL) [Concomitant]
  6. XIAFLEX (CLOSTRIDIAL COLLAGENASE) [Suspect]
     Indication: DUPUYTREN'S CONTRACTURE
     Dosage: 1 IN 1 D,INTRALESIONAL
     Route: 026
     Dates: start: 20110912, end: 20110912

REACTIONS (1)
  - INJECTION SITE PAIN [None]
